FAERS Safety Report 5216370-0 (Version None)
Quarter: 2006Q4

REPORT INFORMATION
  Report Type: 
  Country: None (occurrence: None)
  Receive Date: 20061124
  Receipt Date: 20060724
  Transmission Date: 20070319
  Serious: No
  Sender: FDA-Public Use
  Company Number: WAES 0607USA04355

PATIENT
  Age: 74 Year
  Sex: Male

DRUGS (2)
  1. VYTORIN [Suspect]
     Indication: BLOOD CHOLESTEROL
     Dosage: 10-40 MG/DAILY/PO
     Route: 048
     Dates: start: 20060707, end: 20060701
  2. ASPIRIN [Concomitant]

REACTIONS (1)
  - MYALGIA [None]
